FAERS Safety Report 15007275 (Version 2)
Quarter: 2018Q3

REPORT INFORMATION
  Report Type: Spontaneous
  Country: JP (occurrence: JP)
  Receive Date: 20180613
  Receipt Date: 20180807
  Transmission Date: 20181010
  Serious: Yes (Life-Threatening)
  Sender: FDA-Public Use
  Company Number: JP-009507513-1806JPN004514

PATIENT
  Age: 49 Year
  Sex: Female

DRUGS (5)
  1. MIRTAZAPINE. [Suspect]
     Active Substance: MIRTAZAPINE
     Indication: DEPRESSION
     Dosage: UNKNOWN
     Route: 048
  2. MIRTAZAPINE. [Suspect]
     Active Substance: MIRTAZAPINE
     Dosage: 1950 MG, ONCE
     Route: 048
     Dates: start: 20180531, end: 20180531
  3. NOREPINEPHRINE. [Suspect]
     Active Substance: NOREPINEPHRINE
     Indication: VASOCONSTRICTION
     Dosage: 1 MG
     Route: 042
     Dates: start: 20180531
  4. BORIC ACID [Concomitant]
     Active Substance: BORIC ACID
     Dosage: UNKNOWN
     Route: 065
     Dates: start: 20180529
  5. SENNOSIDES. [Concomitant]
     Active Substance: SENNOSIDES
     Dosage: 780 MG
     Route: 048
     Dates: start: 20180531

REACTIONS (2)
  - Blood pressure decreased [Recovered/Resolved with Sequelae]
  - Altered state of consciousness [Recovered/Resolved with Sequelae]

NARRATIVE: CASE EVENT DATE: 20180531
